FAERS Safety Report 9540788 (Version 2)
Quarter: 2013Q4

REPORT INFORMATION
  Report Type: Spontaneous
  Country: JP (occurrence: JP)
  Receive Date: 20130920
  Receipt Date: 20131010
  Transmission Date: 20140711
  Serious: Yes (Other)
  Sender: FDA-Public Use
  Company Number: JP-PFIZER INC-2013267668

PATIENT
  Sex: 0

DRUGS (1)
  1. AZULFIDINE EN [Suspect]
     Indication: RHEUMATOID ARTHRITIS

REACTIONS (1)
  - Renal impairment [Recovered/Resolved]
